FAERS Safety Report 6728774-5 (Version None)
Quarter: 2010Q2

REPORT INFORMATION
  Report Type: 
  Country: None (occurrence: None)
  Receive Date: 20100517
  Receipt Date: 20100309
  Transmission Date: 20101027
  Serious: No
  Sender: FDA-Public Use
  Company Number: US-ABBOTT-10P-163-0617679-00

PATIENT
  Sex: Female
  Weight: 56.75 kg

DRUGS (4)
  1. SIMCOR [Suspect]
     Indication: BLOOD CHOLESTEROL INCREASED
     Dosage: 500/20 MG
     Dates: start: 20091105, end: 20091201
  2. SIMCOR [Suspect]
     Dosage: 1000/20 MG
     Dates: start: 20091215, end: 20091230
  3. SIMCOR [Suspect]
     Dosage: 500/20MG
     Dates: start: 20091231, end: 20100111
  4. SIMCOR [Suspect]
     Dosage: 500/20 DAILY
     Route: 048
     Dates: start: 20100303

REACTIONS (7)
  - FLUSHING [None]
  - INFLUENZA [None]
  - INSOMNIA [None]
  - NASOPHARYNGITIS [None]
  - PAIN IN EXTREMITY [None]
  - UPPER RESPIRATORY TRACT INFECTION [None]
  - URTICARIA [None]
